FAERS Safety Report 12185276 (Version 2)
Quarter: 2016Q1

REPORT INFORMATION
  Report Type: Spontaneous
  Country: DE (occurrence: DE)
  Receive Date: 20160316
  Receipt Date: 20160321
  Transmission Date: 20160526
  Serious: Yes (Life-Threatening, Hospitalization)
  Sender: FDA-Public Use
  Company Number: DE-ASTRAZENECA-2016SE26622

PATIENT
  Age: 8213 Day
  Sex: Female
  Weight: 93 kg

DRUGS (4)
  1. NOVORAPID [Concomitant]
     Active Substance: INSULIN ASPART
     Route: 058
     Dates: start: 2008, end: 20160305
  2. BASAL INSULIN [Concomitant]
     Indication: TYPE 1 DIABETES MELLITUS
  3. TRESIBA [Concomitant]
     Active Substance: INSULIN DEGLUDEC
     Indication: TYPE 1 DIABETES MELLITUS
     Route: 058
     Dates: end: 201603
  4. FORXIGA [Suspect]
     Active Substance: DAPAGLIFLOZIN
     Indication: TYPE 1 DIABETES MELLITUS
     Route: 048
     Dates: start: 201601, end: 20160307

REACTIONS (9)
  - Off label use [Unknown]
  - Back pain [Unknown]
  - Product use issue [Unknown]
  - Hypophagia [Unknown]
  - Ketoacidosis [Recovered/Resolved]
  - Decreased appetite [Unknown]
  - Nausea [Unknown]
  - Weight decreased [Unknown]
  - Gastroenteritis norovirus [Unknown]

NARRATIVE: CASE EVENT DATE: 20160304
